FAERS Safety Report 6340520-6 (Version None)
Quarter: 2009Q3

REPORT INFORMATION
  Report Type: 
  Country: None (occurrence: None)
  Receive Date: 20090904
  Receipt Date: 20090828
  Transmission Date: 20100115
  Serious: Yes (Other)
  Sender: FDA-Public Use
  Company Number: US-TEVA-207609USA

PATIENT
  Sex: Female
  Weight: 34.504 kg

DRUGS (2)
  1. SALBUTAMOL SULFATE INHALATION, 0.09 MG [Suspect]
     Indication: ASTHMA
     Dosage: PRN
     Route: 055
     Dates: start: 20090516, end: 20090601
  2. MULTI-VITAMIN [Concomitant]

REACTIONS (8)
  - ALANINE AMINOTRANSFERASE INCREASED [None]
  - ASPARTATE AMINOTRANSFERASE INCREASED [None]
  - BLOOD CREATINE PHOSPHOKINASE INCREASED [None]
  - BLOOD UREA NITROGEN/CREATININE RATIO INCREASED [None]
  - HEPATIC STEATOSIS [None]
  - MEAN CELL VOLUME ABNORMAL [None]
  - MUSCULAR DYSTROPHY [None]
  - NEUTROPHIL COUNT ABNORMAL [None]
